FAERS Safety Report 12164886 (Version 1)
Quarter: 2016Q1

REPORT INFORMATION
  Report Type: Report from Study
  Country: US (occurrence: US)
  Receive Date: 20160309
  Receipt Date: 20160309
  Transmission Date: 20160526
  Serious: No
  Sender: FDA-Public Use
  Company Number: US-ABBVIE-15P-163-1442668-00

PATIENT
  Sex: Female

DRUGS (2)
  1. LUPRON DEPOT [Suspect]
     Active Substance: LEUPROLIDE ACETATE
     Indication: OVARIAN CYST
  2. LUPRON DEPOT [Suspect]
     Active Substance: LEUPROLIDE ACETATE
     Indication: UTERINE LEIOMYOMA
     Route: 030
     Dates: start: 2011, end: 2011

REACTIONS (6)
  - Ovarian cyst [Not Recovered/Not Resolved]
  - Hot flush [Recovered/Resolved]
  - Blood cholesterol increased [Recovering/Resolving]
  - Peripheral swelling [Recovered/Resolved]
  - Muscle spasms [Recovered/Resolved]
  - Uterine leiomyoma [Not Recovered/Not Resolved]

NARRATIVE: CASE EVENT DATE: 2011
